FAERS Safety Report 9511852 (Version 1)
Quarter: 2013Q3

REPORT INFORMATION
  Report Type: Spontaneous
  Country: IT (occurrence: None)
  Receive Date: 20130906
  Receipt Date: 20130906
  Transmission Date: 20140515
  Serious: Yes (Other)
  Sender: FDA-Public Use
  Company Number: FK201304080

PATIENT
  Age: 68 Year
  Sex: Female

DRUGS (3)
  1. OXALIPLATIN [Suspect]
     Indication: COLON CANCER METASTATIC
  2. LEUCOVORIN (CALCIUM FOLINATE) [Concomitant]
  3. FLUOROURACIL (FLUOROURACIL) [Concomitant]

REACTIONS (2)
  - Thrombotic thrombocytopenic purpura [None]
  - Colon cancer recurrent [None]
